FAERS Safety Report 7433444-4 (Version None)
Quarter: 2011Q2

REPORT INFORMATION
  Report Type: 
  Country: None (occurrence: None)
  Receive Date: 20110422
  Receipt Date: 20110419
  Transmission Date: 20111010
  Serious: Yes (Death, Other)
  Sender: FDA-Public Use
  Company Number: JP-ROCHE-755105

PATIENT
  Sex: Female

DRUGS (33)
  1. TOCILIZUMAB [Suspect]
     Indication: CASTLEMAN'S DISEASE
     Route: 041
     Dates: start: 20091216, end: 20100924
  2. TOCILIZUMAB [Suspect]
     Route: 041
     Dates: start: 20110214, end: 20110214
  3. PREDNISOLONE [Concomitant]
     Route: 048
     Dates: start: 20100521, end: 20100730
  4. OMEPRAL [Concomitant]
     Dosage: FORM: ENTERIC CAOTING DRUG
     Route: 048
  5. LASIX [Concomitant]
     Route: 048
     Dates: start: 20101209, end: 20101215
  6. PAXIL [Concomitant]
     Dosage: PERORAL AGENT
     Route: 048
     Dates: start: 20100521, end: 20110214
  7. TOCILIZUMAB [Suspect]
     Route: 041
     Dates: start: 20110124, end: 20110124
  8. LASIX [Concomitant]
     Route: 048
     Dates: start: 20100826, end: 20100905
  9. LASIX [Concomitant]
     Route: 048
     Dates: start: 20101216, end: 20110215
  10. SODIUM BICARBONATE [Concomitant]
     Dosage: FORM: PERORAL AGENT
     Route: 048
  11. TOCILIZUMAB [Suspect]
     Route: 041
     Dates: start: 20101021, end: 20110117
  12. PREDNISOLONE [Concomitant]
     Route: 048
     Dates: start: 20100731
  13. ALKERAN [Concomitant]
     Route: 048
  14. LASIX [Concomitant]
     Route: 048
     Dates: start: 20100806, end: 20100825
  15. DIFLUCAN [Concomitant]
     Route: 048
     Dates: start: 20100123
  16. ZYLORIC [Concomitant]
     Dosage: FORM: PERORAL AGENT
     Route: 048
     Dates: end: 20110214
  17. FUNGIZONE [Concomitant]
     Route: 048
     Dates: end: 20110214
  18. TAKEPRON [Concomitant]
     Dosage: PERORAL AGENT
     Route: 048
     Dates: start: 20100715, end: 20110214
  19. TOCILIZUMAB [Suspect]
     Route: 041
     Dates: start: 20110207, end: 20110207
  20. TOCILIZUMAB [Suspect]
     Route: 041
     Dates: start: 20110131, end: 20110131
  21. PREDNISOLONE [Concomitant]
     Route: 048
     Dates: start: 20101204, end: 20110131
  22. LASIX [Concomitant]
     Route: 048
     Dates: start: 20100918, end: 20100924
  23. ANPLAG [Concomitant]
     Dosage: FORM: PERORAL AGENT
     Route: 048
  24. FUROSEMIDE [Concomitant]
     Route: 048
     Dates: start: 20100521
  25. PREDNISOLONE [Concomitant]
     Route: 048
     Dates: end: 20100520
  26. NORMONAL [Concomitant]
     Route: 048
     Dates: end: 20110214
  27. LASIX [Concomitant]
     Dosage: FORM: PERORAL AGENT
     Route: 048
     Dates: end: 20100805
  28. LASIX [Concomitant]
     Route: 048
     Dates: start: 20100925, end: 20101124
  29. LASIX [Concomitant]
     Route: 048
     Dates: start: 20101125, end: 20101208
  30. BAKTAR [Concomitant]
     Route: 048
     Dates: end: 20110214
  31. PREDNISOLONE [Concomitant]
     Dosage: FORM: PERORAL AGENT
     Route: 048
  32. LASIX [Concomitant]
     Route: 048
     Dates: start: 20100906, end: 20100917
  33. BENET [Concomitant]
     Route: 048

REACTIONS (5)
  - URINARY TRACT INFECTION [None]
  - RENAL FAILURE [None]
  - HAEMORRHAGE [None]
  - TIBIA FRACTURE [None]
  - PNEUMONIA ASPIRATION [None]
